FAERS Safety Report 9563450 (Version 1)
Quarter: 2013Q3

REPORT INFORMATION
  Report Type: Spontaneous
  Country: GB (occurrence: None)
  Receive Date: 20130926
  Receipt Date: 20130926
  Transmission Date: 20140515
  Serious: Yes (Other)
  Sender: FDA-Public Use
  Company Number: NGX_01973_2013

PATIENT
  Age: 41 Year
  Sex: Female

DRUGS (1)
  1. QUTENZA [Suspect]
     Indication: PRODUCT USED FOR UNKNOWN INDICATION
     Dosage: DF TOPICAL
     Route: 061
     Dates: start: 20130912, end: 20130912

REACTIONS (5)
  - Burning sensation [None]
  - Application site swelling [None]
  - Application site warmth [None]
  - Application site burn [None]
  - Application site erythema [None]
